FAERS Safety Report 22624015 (Version 2)
Quarter: 2023Q2

REPORT INFORMATION
  Report Type: Spontaneous
  Country: DE (occurrence: None)
  Receive Date: 20230621
  Receipt Date: 20230622
  Transmission Date: 20230722
  Serious: No
  Sender: FDA-Public Use
  Company Number: DE-ROCHE-3372941

PATIENT

DRUGS (2)
  1. OCREVUS [Suspect]
     Active Substance: OCRELIZUMAB
     Indication: Multiple sclerosis
     Route: 065
     Dates: start: 2020
  2. KESIMPTA [Concomitant]
     Active Substance: OFATUMUMAB

REACTIONS (4)
  - Nasopharyngitis [Unknown]
  - Hypersensitivity [Unknown]
  - Coronavirus infection [Unknown]
  - Herpes zoster [Recovering/Resolving]
